FAERS Safety Report 7378380-7 (Version None)
Quarter: 2011Q1

REPORT INFORMATION
  Report Type: 
  Country: None (occurrence: None)
  Receive Date: 20110323
  Receipt Date: 20110323
  Transmission Date: 20110831
  Serious: Yes (Other)
  Sender: FDA-Public Use
  Company Number: None

PATIENT
  Sex: Female
  Weight: 59.8748 kg

DRUGS (15)
  1. BACLOFEN [Suspect]
  2. XANAX [Concomitant]
  3. LETAIRIS [Suspect]
     Indication: PULMONARY HYPERTENSION
     Dosage: 5MG DAILY ORAL
     Route: 048
     Dates: start: 20081024, end: 20101101
  4. HYDROCHLOROTHIAZIDE [Concomitant]
  5. TRACLEER [Concomitant]
  6. BUSPAR [Concomitant]
  7. VITAMIN E [Concomitant]
  8. PULMICORT [Concomitant]
  9. ENOXAC [Concomitant]
  10. LASIX [Concomitant]
  11. PREVACID [Concomitant]
  12. REGLAN [Concomitant]
  13. REMERON [Concomitant]
  14. PAXIL [Concomitant]
  15. SPIRIVA [Concomitant]

REACTIONS (2)
  - ALANINE AMINOTRANSFERASE INCREASED [None]
  - ASPARTATE AMINOTRANSFERASE INCREASED [None]
